FAERS Safety Report 10302112 (Version 1)
Quarter: 2014Q3

REPORT INFORMATION
  Report Type: Spontaneous
  Country: AU (occurrence: None)
  Receive Date: 20140709
  Receipt Date: 20140709
  Transmission Date: 20150326
  Serious: Yes (Hospitalization)
  Sender: FDA-Public Use
  Company Number: IPC201406-000327

PATIENT
  Age: 82 Year
  Sex: Male

DRUGS (5)
  1. ISONIAZID (ISONIAZID (ISONIAZID) [Concomitant]
  2. WARFARIN (WARFARIN) (WARFARIN) [Suspect]
     Active Substance: WARFARIN
     Indication: ATRIAL FIBRILLATION
  3. RIFAMPICIN [Suspect]
     Active Substance: RIFAMPIN
  4. PYRAZINAMIDE (PYRAZINAMIDE) (PYRAZINAMIDE) [Concomitant]
     Active Substance: PYRAZINAMIDE
  5. ETHAMBUTOL (ETHAMABUTOL) (ETHAMBUTOL) [Concomitant]

REACTIONS (8)
  - Dizziness [None]
  - Contusion [None]
  - Drug interaction [None]
  - Abdominal pain [None]
  - Fall [None]
  - International normalised ratio increased [None]
  - Back pain [None]
  - Muscle haemorrhage [None]
